FAERS Safety Report 7112765-9 (Version None)
Quarter: 2010Q4

REPORT INFORMATION
  Report Type: 
  Country: None (occurrence: None)
  Receive Date: 20101119
  Receipt Date: 20101112
  Transmission Date: 20110411
  Serious: Yes (Death)
  Sender: FDA-Public Use
  Company Number: US-SANOFI-AVENTIS-2010SA069494

PATIENT
  Age: 73 Year
  Sex: Male

DRUGS (2)
  1. JEVTANA KIT [Suspect]
     Route: 041
     Dates: start: 20101026, end: 20101026
  2. NEUPOGEN [Concomitant]
     Route: 065
     Dates: start: 20101102, end: 20101102

REACTIONS (1)
  - DEATH [None]
